FAERS Safety Report 8388250-3 (Version None)
Quarter: 2012Q2

REPORT INFORMATION
  Report Type: 
  Country: None (occurrence: None)
  Receive Date: 20120525
  Receipt Date: 20120515
  Transmission Date: 20120825
  Serious: No
  Sender: FDA-Public Use
  Company Number: US-ASTRAZENECA-2011SE52071

PATIENT
  Age: 60 Year
  Sex: Female

DRUGS (31)
  1. PRILOSEC [Suspect]
     Route: 048
  2. MEPERIDINE HCL [Concomitant]
     Dosage: PRN
  3. CALCIUM WITH MAGNESIUM AND ZINC [Concomitant]
  4. TYLENOL [Concomitant]
     Dosage: PRN
  5. MAGNESIUM [Concomitant]
  6. GAS-X [Concomitant]
     Dosage: DAILY
  7. NEXIUM [Suspect]
     Indication: GASTROOESOPHAGEAL REFLUX DISEASE
     Route: 048
  8. GABAPENTIN [Concomitant]
  9. ALBUTEROL [Concomitant]
     Dosage: PRN
  10. ATENOLOL [Suspect]
     Dosage: DAILY
     Route: 048
  11. PLAVIX [Concomitant]
  12. ZOLOFT [Concomitant]
  13. SIMVASTATIN [Concomitant]
  14. MULTI VIT D WITH MINERALS [Concomitant]
  15. FLUTICASONE NASAL [Concomitant]
     Route: 045
  16. MUCINEX DM [Concomitant]
  17. NEXIUM [Suspect]
     Route: 048
  18. NIACIN [Concomitant]
  19. ALLOPURINOL [Concomitant]
  20. OMEGA [Concomitant]
  21. LANSOPRAZOLE ER [Concomitant]
  22. TIZANIDINE [Concomitant]
  23. LOMOTIL [Concomitant]
     Dosage: PRN 2.5/.025
  24. KLOR-CON [Concomitant]
  25. PHENERGAN [Concomitant]
     Dosage: 50 MG PRN
  26. ZOMIG [Suspect]
     Indication: MIGRAINE
     Route: 048
  27. DIAZEPAM [Concomitant]
  28. ESTRADIOL [Concomitant]
  29. LUNESTA [Concomitant]
  30. ATENOL/CHLOR [Concomitant]
     Dosage: 50/25
  31. HYDROCO PAP [Concomitant]
     Dosage: PRN 7.5/500

REACTIONS (10)
  - MALAISE [None]
  - DRUG HYPERSENSITIVITY [None]
  - LARYNGITIS [None]
  - HALLUCINATION [None]
  - GASTROOESOPHAGEAL REFLUX DISEASE [None]
  - DRUG INEFFECTIVE [None]
  - DYSPEPSIA [None]
  - INTENTIONAL DRUG MISUSE [None]
  - IMMUNE SYSTEM DISORDER [None]
  - MIGRAINE [None]
